FAERS Safety Report 24451750 (Version 6)
Quarter: 2024Q4

REPORT INFORMATION
  Report Type: Report from Study
  Country: RO (occurrence: RO)
  Receive Date: 20241017
  Receipt Date: 20241224
  Transmission Date: 20250114
  Serious: Yes (Hospitalization, Other)
  Sender: NOVARTIS
  Company Number: RO-002147023-NVSC2024RO088076

PATIENT
  Age: 75 Year
  Sex: Female
  Weight: 60 kg

DRUGS (10)
  1. ELTROMBOPAG OLAMINE [Suspect]
     Active Substance: ELTROMBOPAG OLAMINE
     Indication: Thrombocytopenia
     Dosage: 50 MG, BID (2 TABLETS A DAY)
     Route: 048
     Dates: start: 202305, end: 202306
  2. ELTROMBOPAG OLAMINE [Suspect]
     Active Substance: ELTROMBOPAG OLAMINE
     Indication: Myelodysplastic syndrome
     Dosage: 50 MG, QD
     Route: 048
     Dates: start: 202307, end: 202404
  3. ELTROMBOPAG OLAMINE [Suspect]
     Active Substance: ELTROMBOPAG OLAMINE
     Dosage: 50 MG, QD (ONCE A DAY)
     Route: 048
     Dates: start: 202405, end: 202410
  4. TAMOXIFEN [Concomitant]
     Active Substance: TAMOXIFEN
     Indication: Breast cancer
     Dosage: 10 MG, BID (TABLET)
     Route: 048
     Dates: start: 2020
  5. TAMOXIFEN [Concomitant]
     Active Substance: TAMOXIFEN
     Indication: Neuropathy peripheral
  6. DEXAMETHASONE [Concomitant]
     Active Substance: DEXAMETHASONE
     Indication: Thrombocytopenia
     Dosage: UNK (INJECTION)
     Route: 042
     Dates: start: 202404, end: 202404
  7. DEXAMETHASONE [Concomitant]
     Active Substance: DEXAMETHASONE
     Dosage: 2 DOSAGE FORM (VIALS) (INJECTION)
     Route: 042
     Dates: start: 202410, end: 202410
  8. COLEBIL [Concomitant]
     Indication: Dyspepsia
     Dosage: UNK
     Route: 065
  9. JANUMET [Concomitant]
     Active Substance: METFORMIN HYDROCHLORIDE\SITAGLIPTIN PHOSPHATE
     Indication: Diabetes mellitus
     Dosage: 1 DOSAGE FORM, QD
     Route: 065
  10. SULODEXIDE [Concomitant]
     Active Substance: SULODEXIDE
     Indication: Anticoagulant therapy
     Dosage: UNK
     Route: 065

REACTIONS (14)
  - Platelet count decreased [Not Recovered/Not Resolved]
  - Product availability issue [Recovered/Resolved]
  - Haemoglobin decreased [Not Recovered/Not Resolved]
  - Purpura [Recovered/Resolved]
  - Weight decreased [Recovered/Resolved]
  - Cataract [Unknown]
  - Headache [Not Recovered/Not Resolved]
  - Skin discolouration [Unknown]
  - Balance disorder [Recovering/Resolving]
  - Decreased appetite [Recovering/Resolving]
  - Nausea [Recovering/Resolving]
  - Product availability issue [Recovered/Resolved]
  - Product use in unapproved indication [Unknown]
  - Dizziness [Not Recovered/Not Resolved]

NARRATIVE: CASE EVENT DATE: 20230501
